FAERS Safety Report 10699795 (Version 1)
Quarter: 2015Q1

REPORT INFORMATION
  Report Type: Spontaneous
  Country: FR (occurrence: FR)
  Receive Date: 20150109
  Receipt Date: 20150109
  Transmission Date: 20150721
  Serious: Yes (Death, Hospitalization)
  Sender: FDA-Public Use
  Company Number: FR-TEVA-532139ISR

PATIENT
  Age: 56 Year
  Sex: Male

DRUGS (11)
  1. CLONAZEPAM. [Interacting]
     Active Substance: CLONAZEPAM
  2. CARBAMAZEPINE. [Suspect]
     Active Substance: CARBAMAZEPINE
  3. GABAPENTIN. [Concomitant]
     Active Substance: GABAPENTIN
  4. GABAPENTIN. [Concomitant]
     Active Substance: GABAPENTIN
  5. AMLODIPINE [Interacting]
     Active Substance: AMLODIPINE BESYLATE
  6. PHENOBARBITAL. [Concomitant]
     Active Substance: PHENOBARBITAL
  7. GABAPENTIN. [Concomitant]
     Active Substance: GABAPENTIN
  8. LAMOTRIGINE. [Suspect]
     Active Substance: LAMOTRIGINE
  9. VALSARTAN. [Concomitant]
     Active Substance: VALSARTAN
  10. ATORVASTATIN [Interacting]
     Active Substance: ATORVASTATIN
  11. LACOSAMIDE [Interacting]
     Active Substance: LACOSAMIDE
     Indication: SUICIDE ATTEMPT

REACTIONS (7)
  - Intentional overdose [Unknown]
  - Multi-organ failure [Fatal]
  - Completed suicide [Fatal]
  - Electrocardiogram QRS complex prolonged [Fatal]
  - Drug interaction [Fatal]
  - Shock [Fatal]
  - Toxicity to various agents [Unknown]
